FAERS Safety Report 6996139-7 (Version None)
Quarter: 2010Q3

REPORT INFORMATION
  Report Type: 
  Country: None (occurrence: None)
  Receive Date: 20100918
  Receipt Date: 20081222
  Transmission Date: 20110219
  Serious: No
  Sender: FDA-Public Use
  Company Number: US-WYE-H07383108

PATIENT
  Age: 62 Year
  Sex: Female

DRUGS (9)
  1. EFFEXOR XR [Suspect]
     Indication: DEPRESSION
     Route: 048
     Dates: start: 20060101
  2. EFFEXOR XR [Suspect]
     Indication: ANXIETY
  3. ATENOLOL [Concomitant]
  4. CARDIZEM [Concomitant]
  5. ISOSORBIDE [Concomitant]
  6. SYNTHROID [Concomitant]
  7. ZOCOR [Concomitant]
  8. IRON [Concomitant]
  9. LISINOPRIL [Concomitant]

REACTIONS (1)
  - TOOTH DISORDER [None]
